FAERS Safety Report 8964070 (Version 1)
Quarter: 2012Q4

REPORT INFORMATION
  Report Type: 
  Country: CA (occurrence: CA)
  Receive Date: 20121213
  Receipt Date: 20121213
  Transmission Date: 20130627
  Serious: Yes (Life-Threatening)
  Sender: FDA-Public Use
  Company Number: CA-B.I. PHARMACEUTICALS,INC./RIDGEFIELD-2012-CN-02531CN

PATIENT
  Age: 59 Year
  Sex: Female
  Weight: 65 kg

DRUGS (2)
  1. PRADAX [Suspect]
     Route: 065
  2. WARFARIN [Concomitant]

REACTIONS (3)
  - Cardiac valve replacement complication [Unknown]
  - Dyspnoea [Unknown]
  - Thrombosis [Unknown]
